FAERS Safety Report 4861039-5 (Version None)
Quarter: 2005Q4

REPORT INFORMATION
  Report Type: 
  Country: None (occurrence: None)
  Receive Date: 20051216
  Receipt Date: 20051208
  Transmission Date: 20060501
  Serious: Yes (Hospitalization)
  Sender: FDA-Public Use
  Company Number: SUS1-2005-00770

PATIENT
  Age: 66 Year
  Sex: Male
  Weight: 77.1 kg

DRUGS (2)
  1. AGRYLIN [Suspect]
     Indication: PLATELET COUNT INCREASED
     Dosage: SEE IMAGE
     Route: 065
     Dates: start: 20041201
  2. ASPIRIN [Concomitant]

REACTIONS (4)
  - ACUTE CORONARY SYNDROME [None]
  - CORONARY ARTERY DISEASE [None]
  - EJECTION FRACTION DECREASED [None]
  - ELECTROCARDIOGRAM T WAVE INVERSION [None]
